FAERS Safety Report 5816649-5 (Version None)
Quarter: 2008Q3

REPORT INFORMATION
  Report Type: 
  Country: None (occurrence: None)
  Receive Date: 20080721
  Receipt Date: 20080709
  Transmission Date: 20090109
  Serious: Yes (Death)
  Sender: FDA-Public Use
  Company Number: IN-PFIZER INC-2008046200

PATIENT
  Age: 45 Year
  Sex: Female
  Weight: 42 kg

DRUGS (3)
  1. CYCLOKAPRON (IV) [Suspect]
     Indication: HAEMORRHAGE PROPHYLAXIS
     Route: 042
  2. TARGOCID [Suspect]
  3. CEFPIROME [Suspect]

REACTIONS (5)
  - DISSEMINATED INTRAVASCULAR COAGULATION [None]
  - HAEMOGLOBINURIA [None]
  - HAEMOLYSIS [None]
  - HYPERTENSION [None]
  - MULTI-ORGAN FAILURE [None]
